FAERS Safety Report 6234469-7 (Version None)
Quarter: 2009Q2

REPORT INFORMATION
  Report Type: 
  Country: None (occurrence: None)
  Receive Date: 20090615
  Receipt Date: 20090604
  Transmission Date: 20091009
  Serious: Yes (Hospitalization)
  Sender: FDA-Public Use
  Company Number: 230331K09BRA

PATIENT
  Sex: Male

DRUGS (3)
  1. REBIF [Suspect]
     Indication: SECONDARY PROGRESSIVE MULTIPLE SCLEROSIS
     Dosage: 44 MCG, 3 IN 1 WEEKS
     Dates: start: 20050808
  2. DIAZEPAM [Concomitant]
  3. GARDENAL (PHENOBARBITAL /00023201/) [Concomitant]

REACTIONS (2)
  - ERYSIPELAS [None]
  - GAIT DISTURBANCE [None]
